FAERS Safety Report 11643923 (Version 1)
Quarter: 2015Q4

REPORT INFORMATION
  Report Type: Spontaneous
  Country: DK (occurrence: DK)
  Receive Date: 20151020
  Receipt Date: 20151020
  Transmission Date: 20160304
  Serious: Yes (Death)
  Sender: FDA-Public Use
  Company Number: DK-TEVA-601049ISR

PATIENT
  Age: 49 Year
  Sex: Female
  Weight: 62 kg

DRUGS (8)
  1. MORPHINE [Suspect]
     Active Substance: MORPHINE
     Indication: PRODUCT USED FOR UNKNOWN INDICATION
  2. QUETIAPINE [Suspect]
     Active Substance: QUETIAPINE
  3. PREGABALIN. [Concomitant]
     Active Substance: PREGABALIN
  4. ETHANOL [Concomitant]
     Active Substance: ALCOHOL
  5. DELTA(9)-TETRAHYDROCANNABINOL [Concomitant]
  6. METHADONE [Concomitant]
     Active Substance: METHADONE HYDROCHLORIDE
  7. MORPHINE [Suspect]
     Active Substance: MORPHINE
  8. NALOXONE [Concomitant]
     Active Substance: NALOXONE

REACTIONS (3)
  - Drug level increased [Fatal]
  - Completed suicide [Fatal]
  - Toxicity to various agents [Fatal]
